FAERS Safety Report 6309271-8 (Version None)
Quarter: 2009Q3

REPORT INFORMATION
  Report Type: 
  Country: None (occurrence: None)
  Receive Date: 20090811
  Receipt Date: 20090728
  Transmission Date: 20100115
  Serious: Yes (Hospitalization)
  Sender: FDA-Public Use
  Company Number: CLOF-1000624

PATIENT
  Age: 76 Year
  Sex: Male

DRUGS (9)
  1. EVOLTRA (CLOFARABINE) SOLUTION FOR INFUSION [Suspect]
     Indication: ACUTE MYELOID LEUKAEMIA
     Dates: start: 20090601, end: 20090605
  2. SERETIDE (FLUTICASONE PROPIONATE, SALMETEROL) [Concomitant]
  3. SALBUTAMOL (SALBUTAMOL SULFATE) [Concomitant]
  4. FLUOXETINE (FLUOXETINE HYDROCHLORIDE) [Concomitant]
  5. ITRACONAZOLE [Concomitant]
  6. FUROSEMIDE (FUROSEMIDE SODIUM) [Concomitant]
  7. OMEPRAZOLE [Concomitant]
  8. PARACETAMOL (PARACETAMOL) [Concomitant]
  9. VANCOMYCIN [Concomitant]

REACTIONS (14)
  - AGITATION [None]
  - ATROPHY [None]
  - BLOOD POTASSIUM DECREASED [None]
  - BODY TEMPERATURE INCREASED [None]
  - CATHETER SITE CELLULITIS [None]
  - CONFUSIONAL STATE [None]
  - CSF PROTEIN INCREASED [None]
  - FALL [None]
  - HEAD INJURY [None]
  - HYPERTENSION [None]
  - PLATELET COUNT DECREASED [None]
  - TREMOR [None]
  - URINARY INCONTINENCE [None]
  - WHITE BLOOD CELL COUNT DECREASED [None]
